FAERS Safety Report 9858600 (Version 2)
Quarter: 2014Q2

REPORT INFORMATION
  Report Type: Spontaneous
  Country: GB (occurrence: GB)
  Receive Date: 20140131
  Receipt Date: 20140428
  Transmission Date: 20141212
  Serious: Yes (Life-Threatening)
  Sender: FDA-Public Use
  Company Number: GB-B.I. PHARMACEUTICALS,INC./RIDGEFIELD-2014-BI-04389UK

PATIENT
  Age: 70 Year
  Sex: Female
  Weight: 60 kg

DRUGS (4)
  1. PRADAXA [Suspect]
     Indication: ARRHYTHMIA PROPHYLAXIS
     Dosage: 300 MG
     Route: 065
     Dates: start: 20120621, end: 20131008
  2. DILTIAZEM [Concomitant]
     Route: 065
  3. OMEPRAZOLE [Concomitant]
     Route: 065
  4. ROSUVASTATIN [Concomitant]
     Route: 065

REACTIONS (1)
  - Embolic stroke [Recovered/Resolved with Sequelae]
